FAERS Safety Report 5316733-9 (Version None)
Quarter: 2007Q2

REPORT INFORMATION
  Report Type: 
  Country: None (occurrence: None)
  Receive Date: 20070504
  Receipt Date: 20070426
  Transmission Date: 20071010
  Serious: Yes (Hospitalization)
  Sender: FDA-Public Use
  Company Number: 2007PK00905

PATIENT
  Age: 82 Year
  Sex: Male
  Weight: 56 kg

DRUGS (5)
  1. NEXIUM [Suspect]
     Route: 048
     Dates: start: 20061217, end: 20070124
  2. AUGMENTIN '125' [Suspect]
     Indication: PNEUMONIA ASPIRATION
     Route: 042
     Dates: start: 20061130, end: 20061211
  3. AUGMENTIN '125' [Suspect]
     Route: 048
     Dates: start: 20061217, end: 20061230
  4. PLAVIX [Concomitant]
     Indication: TRANSIENT ISCHAEMIC ATTACK
     Route: 048
  5. ATORVASTATIN CALCIUM [Concomitant]
     Indication: HYPERLIPIDAEMIA
     Route: 048
     Dates: end: 20060124

REACTIONS (1)
  - CHOLESTASIS [None]
